FAERS Safety Report 7920655-4 (Version None)
Quarter: 2011Q4

REPORT INFORMATION
  Report Type: 
  Country: None (occurrence: None)
  Receive Date: 20111117
  Receipt Date: 20111114
  Transmission Date: 20120403
  Serious: Yes (Other)
  Sender: FDA-Public Use
  Company Number: US-BAYER-2011-096800

PATIENT
  Age: 48 Year
  Sex: Female

DRUGS (8)
  1. BETASERON [Suspect]
     Indication: MULTIPLE SCLEROSIS
     Dosage: UNK
     Route: 058
     Dates: start: 20110811
  2. NEURONTIN [Concomitant]
  3. ACETAMINOPHEN [Concomitant]
     Indication: PREMEDICATION
  4. BETASERON [Suspect]
     Dosage: 8 MIU, QOD
     Route: 058
  5. ZANAFLEX [Concomitant]
  6. CORTICOSTEROIDS [Concomitant]
  7. BETASERON [Suspect]
     Dosage: 6 MIU, QOD
     Route: 058
  8. BENADRYL [Concomitant]

REACTIONS (10)
  - BLOOD PRESSURE INCREASED [None]
  - ERYTHEMA [None]
  - ALOPECIA [None]
  - INFLUENZA LIKE ILLNESS [None]
  - LIVER INJURY [None]
  - HEPATIC ENZYME INCREASED [None]
  - HYPERTHYROIDISM [None]
  - ASTHENIA [None]
  - HEART RATE INCREASED [None]
  - CHILLS [None]
